FAERS Safety Report 20438532 (Version 2)
Quarter: 2022Q2

REPORT INFORMATION
  Report Type: Spontaneous
  Country: US (occurrence: US)
  Receive Date: 20220207
  Receipt Date: 20220427
  Transmission Date: 20220721
  Serious: No
  Sender: FDA-Public Use
  Company Number: US-PFIZER INC-2020140894

PATIENT
  Age: 68 Year
  Sex: Female

DRUGS (1)
  1. IBRANCE [Suspect]
     Active Substance: PALBOCICLIB
     Indication: Breast cancer metastatic
     Dosage: 125 MG, UNK

REACTIONS (5)
  - Laryngitis [Unknown]
  - Bronchitis [Unknown]
  - Nervousness [Unknown]
  - Product dose omission issue [Unknown]
  - Drug dispensed to wrong patient [Unknown]
